FAERS Safety Report 8404173-5 (Version None)
Quarter: 2012Q2

REPORT INFORMATION
  Report Type: 
  Country: None (occurrence: None)
  Receive Date: 20120601
  Receipt Date: 20120523
  Transmission Date: 20120825
  Serious: Yes (Other)
  Sender: FDA-Public Use
  Company Number: CHPA2012US010515

PATIENT
  Sex: Female

DRUGS (5)
  1. HORMONES [Concomitant]
  2. EXCEDRIN EXTRA STRENGTH TABLETS [Suspect]
     Indication: ASTHENIA
     Dosage: 1/2 DF, EVERY MORNING
     Route: 048
  3. DRUG THERAPY NOS [Concomitant]
     Indication: BLOOD PRESSURE ABNORMAL
  4. FLEXERIL [Suspect]
     Dosage: UNK, UNK
  5. RANITIDINE [Concomitant]
     Indication: GASTROOESOPHAGEAL REFLUX DISEASE

REACTIONS (11)
  - DRUG DEPENDENCE [None]
  - PRURITUS GENERALISED [None]
  - OEDEMA PERIPHERAL [None]
  - NERVE COMPRESSION [None]
  - SWELLING FACE [None]
  - PAIN IN EXTREMITY [None]
  - LIP SWELLING [None]
  - FATIGUE [None]
  - WRONG TECHNIQUE IN DRUG USAGE PROCESS [None]
  - OFF LABEL USE [None]
  - INCORRECT DRUG ADMINISTRATION DURATION [None]
